FAERS Safety Report 8873022 (Version 1)
Quarter: 2012Q4

REPORT INFORMATION
  Report Type: 
  Country: US (occurrence: US)
  Receive Date: 20121029
  Receipt Date: 20121029
  Transmission Date: 20130627
  Serious: Yes (Hospitalization)
  Sender: FDA-Public Use
  Company Number: US-AMGEN-USASP2012067866

PATIENT
  Age: 1 Day
  Sex: Male

DRUGS (1)
  1. ENBREL [Suspect]
     Dosage: UNK
     Route: 064

REACTIONS (1)
  - Body temperature increased [Recovered/Resolved]
